FAERS Safety Report 6834865-0 (Version None)
Quarter: 2010Q3

REPORT INFORMATION
  Report Type: 
  Country: None (occurrence: None)
  Receive Date: 20100712
  Receipt Date: 20070619
  Transmission Date: 20110219
  Serious: No
  Sender: FDA-Public Use
  Company Number: US-PFIZER INC-2007031946

PATIENT

DRUGS (2)
  1. CHANTIX [Suspect]
  2. WARFARIN SODIUM [Interacting]

REACTIONS (3)
  - DRUG INTERACTION [None]
  - GINGIVAL BLEEDING [None]
  - MOUTH HAEMORRHAGE [None]
